FAERS Safety Report 9402473 (Version 1)
Quarter: 2013Q3

REPORT INFORMATION
  Report Type: Report from Study
  Country: ES (occurrence: ES)
  Receive Date: 20130716
  Receipt Date: 20130716
  Transmission Date: 20140515
  Serious: Yes (Other)
  Sender: FDA-Public Use
  Company Number: ES-ROCHE-1248902

PATIENT
  Sex: 0

DRUGS (2)
  1. TRASTUZUMAB [Suspect]
     Indication: BREAST CANCER METASTATIC
     Route: 065
  2. LAPATINIB [Suspect]
     Indication: BREAST CANCER METASTATIC
     Route: 065

REACTIONS (5)
  - Diarrhoea [Unknown]
  - Palmar-plantar erythrodysaesthesia syndrome [Unknown]
  - Cardiotoxicity [Unknown]
  - Anaemia [Unknown]
  - Asthenia [Unknown]
